FAERS Safety Report 8255906-2 (Version None)
Quarter: 2012Q2

REPORT INFORMATION
  Report Type: 
  Country: None (occurrence: None)
  Receive Date: 20120403
  Receipt Date: 20120326
  Transmission Date: 20120825
  Serious: Yes (Other)
  Sender: FDA-Public Use
  Company Number: US-ASTRAZENECA-2012SE20214

PATIENT
  Age: 63 Year
  Sex: Female
  Weight: 62.1 kg

DRUGS (16)
  1. ZOLPIDEM [Concomitant]
     Indication: SLEEP DISORDER
  2. LOVAZA [Concomitant]
     Route: 048
  3. DETROL [Concomitant]
     Route: 048
  4. SEROQUEL [Suspect]
     Indication: MENTAL DISORDER
     Dosage: TWICE A DAY
     Route: 048
     Dates: start: 20040101
  5. GABAPENTIN [Concomitant]
     Route: 048
  6. SEROQUEL [Suspect]
     Indication: DEPRESSION
     Dosage: TWICE A DAY
     Route: 048
     Dates: start: 20040101
  7. SEROQUEL [Suspect]
     Dosage: TWICE A DAY
     Route: 048
     Dates: end: 20110101
  8. CLONAZEPAM [Suspect]
     Dosage: 3 TIMES A DAY
     Route: 065
  9. POT CHLOR ER [Concomitant]
     Route: 048
  10. VENLAFAXINE [Concomitant]
  11. TIZANIDINE HCL [Concomitant]
     Route: 048
  12. METFORMIN HCL [Concomitant]
     Dosage: TWO TABLETS BID (TWO TIMES A DAY)
  13. SEROQUEL [Suspect]
     Dosage: TWICE A DAY
     Route: 048
     Dates: end: 20110101
  14. ROPINIROLE [Concomitant]
  15. ADVIR [Concomitant]
     Dosage: 250/50
  16. ACETAMINOPHEN AND HYDROCODONE BITARTRATE [Concomitant]

REACTIONS (7)
  - HYPERTENSION [None]
  - DIABETES MELLITUS [None]
  - BLOOD CHOLESTEROL ABNORMAL [None]
  - FIBROMYALGIA [None]
  - OSTEOPOROSIS [None]
  - DEPRESSION [None]
  - BLOOD CHOLESTEROL INCREASED [None]
